FAERS Safety Report 7141147-9 (Version None)
Quarter: 2010Q4

REPORT INFORMATION
  Report Type: 
  Country: None (occurrence: None)
  Receive Date: 20101207
  Receipt Date: 20100719
  Transmission Date: 20110411
  Serious: Yes (Hospitalization)
  Sender: FDA-Public Use
  Company Number: US-BAYER-200941142NA

PATIENT
  Sex: Female
  Weight: 113.64 kg

DRUGS (1)
  1. YASMIN [Suspect]
     Route: 048
     Dates: start: 20050401, end: 20061125

REACTIONS (9)
  - ACUTE MYOCARDIAL INFARCTION [None]
  - CORONARY ARTERY OCCLUSION [None]
  - CORONARY ARTERY STENOSIS [None]
  - CORONARY ARTERY THROMBOSIS [None]
  - HAEMATOCRIT INCREASED [None]
  - POST PROCEDURAL COMPLICATION [None]
  - POST PROCEDURAL HAEMORRHAGE [None]
  - PROCEDURAL PAIN [None]
  - SKIN DISCOLOURATION [None]
